FAERS Safety Report 6131849-5 (Version None)
Quarter: 2009Q1

REPORT INFORMATION
  Report Type: 
  Country: None (occurrence: None)
  Receive Date: 20090325
  Receipt Date: 20090319
  Transmission Date: 20090719
  Serious: No
  Sender: FDA-Public Use
  Company Number: PHHY2009JP08743

PATIENT
  Age: 60 Year
  Sex: Female

DRUGS (1)
  1. PARLODEL [Suspect]
     Route: 048

REACTIONS (2)
  - BLOOD PROLACTIN INCREASED [None]
  - GASTROINTESTINAL DISORDER [None]
